FAERS Safety Report 5065529-4 (Version None)
Quarter: 2006Q3

REPORT INFORMATION
  Report Type: 
  Country: None (occurrence: None)
  Receive Date: 20060731
  Receipt Date: 20060725
  Transmission Date: 20061208
  Serious: Yes (Other)
  Sender: FDA-Public Use
  Company Number: US-GLAXOSMITHKLINE-A0613866A

PATIENT
  Age: 64 Year
  Sex: Female

DRUGS (6)
  1. PAXIL [Suspect]
     Indication: MIGRAINE PROPHYLAXIS
     Dosage: 60MG PER DAY
     Route: 048
  2. EFFEXOR [Suspect]
     Indication: MIGRAINE
     Dosage: 225MG PER DAY
     Route: 048
  3. VICODIN [Concomitant]
  4. TAGAMET [Concomitant]
  5. ALEVE (CAPLET) [Concomitant]
  6. BENADRYL [Concomitant]

REACTIONS (1)
  - SUICIDAL IDEATION [None]
